FAERS Safety Report 20769452 (Version 1)
Quarter: 2022Q2

REPORT INFORMATION
  Report Type: Report from Study
  Country: US (occurrence: None)
  Receive Date: 20220429
  Receipt Date: 20220429
  Transmission Date: 20220720
  Serious: Yes (Hospitalization)
  Sender: FDA-Public Use
  Company Number: 2022A160187

PATIENT
  Sex: Female

DRUGS (6)
  1. OLAPARIB [Suspect]
     Active Substance: OLAPARIB
     Indication: Fallopian tube cancer
     Dosage: 200 MG BID (DAYS 2-8);
     Route: 048
     Dates: start: 20160407
  2. OLAPARIB [Suspect]
     Active Substance: OLAPARIB
     Indication: Fallopian tube cancer
     Dosage: 200 MG BID (DAYS 2-8);
     Route: 048
     Dates: start: 20160415
  3. BEVACIZUMAB [Suspect]
     Active Substance: BEVACIZUMAB
     Indication: Fallopian tube cancer
     Dosage: 15 MG/KG (DAY 2)
     Route: 065
     Dates: start: 20160407
  4. PACLITAXEL [Suspect]
     Active Substance: PACLITAXEL
     Indication: Fallopian tube cancer
     Dosage: 135 MG/M^2 (DAY 1);
     Route: 065
     Dates: start: 20160407
  5. PACLITAXEL [Suspect]
     Active Substance: PACLITAXEL
     Indication: Fallopian tube cancer
     Dosage: 60 MG/M^2 (DAY 8)
     Route: 065
     Dates: start: 20160415
  6. CISPLATIN [Suspect]
     Active Substance: CISPLATIN
     Indication: Fallopian tube cancer
     Dosage: 75 MG/M^2 (DAY 2)
     Route: 065
     Dates: start: 20160407

REACTIONS (2)
  - Neutrophil count decreased [Unknown]
  - Presyncope [Unknown]

NARRATIVE: CASE EVENT DATE: 20160418
